FAERS Safety Report 4658697-7 (Version None)
Quarter: 2005Q2

REPORT INFORMATION
  Report Type: 
  Country: None (occurrence: None)
  Receive Date: 20050510
  Receipt Date: 20050510
  Transmission Date: 20051028
  Serious: Yes (Hospitalization)
  Sender: FDA-Public Use
  Company Number: None

PATIENT
  Age: 39 Year
  Sex: Female
  Weight: 61.2356 kg

DRUGS (2)
  1. VIOXX [Suspect]
     Indication: INTERVERTEBRAL DISC PROTRUSION
     Dosage: 25 MG ONCE A DAY ORAL
     Route: 048
     Dates: start: 20000601, end: 20031001
  2. VIOXX [Suspect]
     Indication: PAIN
     Dosage: 25 MG ONCE A DAY ORAL
     Route: 048
     Dates: start: 20000601, end: 20031001

REACTIONS (6)
  - DECREASED ACTIVITY [None]
  - DIARRHOEA [None]
  - EROSIVE DUODENITIS [None]
  - ERYTHEMA [None]
  - GASTROINTESTINAL MUCOSAL DISORDER [None]
  - MALAISE [None]
